FAERS Safety Report 24206301 (Version 1)
Quarter: 2024Q3

REPORT INFORMATION
  Report Type: Spontaneous
  Country: FR (occurrence: FR)
  Receive Date: 20240813
  Receipt Date: 20240813
  Transmission Date: 20241017
  Serious: Yes (Hospitalization)
  Sender: HARMONY BIOSCIENCES
  Company Number: FR-HARMONY BIOSCIENCES-2024HMY01560

PATIENT

DRUGS (5)
  1. PITOLISANT [Suspect]
     Active Substance: PITOLISANT
     Indication: Sleep apnoea syndrome
     Dosage: 4.45 MG, 1X/DAY
     Route: 065
     Dates: start: 202405, end: 2024
  2. PITOLISANT [Suspect]
     Active Substance: PITOLISANT
     Dosage: 4.45 MG ^TWICE DAILY^
     Route: 065
     Dates: start: 2024, end: 2024
  3. PITOLISANT [Suspect]
     Active Substance: PITOLISANT
     Dosage: 17.8 MG, 1X/DAY
     Route: 065
     Dates: start: 2024, end: 20240712
  4. MELATONIN [Concomitant]
     Active Substance: MELATONIN
     Indication: Motor dysfunction
     Dosage: UNK
     Route: 065
     Dates: start: 202311
  5. METFORMIN [Concomitant]
     Active Substance: METFORMIN HYDROCHLORIDE
     Indication: Product used for unknown indication
     Dosage: UNK
     Route: 065
     Dates: end: 20240712

REACTIONS (2)
  - Fall [Unknown]
  - Diarrhoea [Recovered/Resolved]

NARRATIVE: CASE EVENT DATE: 20240101
